FAERS Safety Report 5194131-9 (Version None)
Quarter: 2006Q4

REPORT INFORMATION
  Report Type: 
  Country: None (occurrence: None)
  Receive Date: 20061220
  Receipt Date: 20061211
  Transmission Date: 20070319
  Serious: Yes (Hospitalization)
  Sender: FDA-Public Use
  Company Number: HQWYE984113DEC06

PATIENT
  Age: 41 Year
  Sex: Female

DRUGS (3)
  1. RAPAMUNE [Suspect]
     Dosage: ABOUT 3 YEARS- DISCONTINUED 1 MONTH
  2. PREDNISONE TAB [Concomitant]
  3. TACROLIMUS (TACROLIMUS) [Concomitant]

REACTIONS (6)
  - ALVEOLAR PROTEINOSIS [None]
  - BLOOD LACTATE DEHYDROGENASE INCREASED [None]
  - HAEMOGLOBIN INCREASED [None]
  - PCO2 DECREASED [None]
  - PULMONARY TUBERCULOSIS [None]
  - THERAPEUTIC RESPONSE DECREASED [None]
